FAERS Safety Report 4725814-X (Version None)
Quarter: 2005Q3

REPORT INFORMATION
  Report Type: 
  Country: None (occurrence: None)
  Receive Date: 20050725
  Receipt Date: 20050712
  Transmission Date: 20060218
  Serious: Yes (Other)
  Sender: FDA-Public Use
  Company Number: 2005099321

PATIENT
  Age: 5 Year
  Sex: Male
  Weight: 18.1439 kg

DRUGS (1)
  1. BENADRYL [Suspect]
     Indication: ACCIDENTAL OVERDOSE
     Dosage: 10 FASTMELTS ONCE, ORAL
     Route: 048
     Dates: start: 20050712, end: 20050712

REACTIONS (2)
  - ACCIDENTAL EXPOSURE [None]
  - PSYCHOMOTOR HYPERACTIVITY [None]
